FAERS Safety Report 25395973 (Version 5)
Quarter: 2025Q3

REPORT INFORMATION
  Report Type: Report from Study
  Country: JP (occurrence: JP)
  Receive Date: 20250604
  Receipt Date: 20250919
  Transmission Date: 20251021
  Serious: Yes (Death, Hospitalization)
  Sender: GILEAD
  Company Number: JP-GILEAD-2025-0715451

PATIENT
  Age: 6 Decade
  Sex: Female

DRUGS (41)
  1. BICTEGRAVIR\EMTRICITABINE\TENOFOVIR ALAFENAMIDE [Suspect]
     Active Substance: BICTEGRAVIR\EMTRICITABINE\TENOFOVIR ALAFENAMIDE
     Indication: HIV infection
     Dosage: 1 DOSAGE FORM, QD
     Route: 048
     Dates: start: 20240403, end: 20250211
  2. EMTRICITABINE\TENOFOVIR [Suspect]
     Active Substance: EMTRICITABINE\TENOFOVIR
     Indication: HIV infection
     Route: 065
     Dates: start: 20181101, end: 20240402
  3. OFEV [Suspect]
     Active Substance: NINTEDANIB
     Indication: Interstitial lung disease
     Route: 065
     Dates: start: 20240307, end: 20240325
  4. TIVICAY [Concomitant]
     Active Substance: DOLUTEGRAVIR SODIUM
     Indication: HIV infection
     Dates: start: 20181101, end: 20240402
  5. PIRFENIDONE [Concomitant]
     Active Substance: PIRFENIDONE
     Indication: Combined pulmonary fibrosis and emphysema
     Dosage: 3 DOSAGE FORM, TID
     Route: 065
     Dates: start: 20210209, end: 20210215
  6. PIRFENIDONE [Concomitant]
     Active Substance: PIRFENIDONE
     Dosage: 6 DOSAGE FORM, TID
     Route: 065
     Dates: start: 20210216, end: 20250224
  7. PIRFENIDONE [Concomitant]
     Active Substance: PIRFENIDONE
     Dosage: 9 DOSAGE FORM, TID
     Route: 065
     Dates: start: 20210225, end: 20210408
  8. PIRFENIDONE [Concomitant]
     Active Substance: PIRFENIDONE
     Dosage: 6 DOSAGE FORM, TID
     Route: 065
     Dates: start: 20210409, end: 20210419
  9. PIRFENIDONE [Concomitant]
     Active Substance: PIRFENIDONE
     Dosage: 3 DOSAGE FORM, TID
     Route: 065
     Dates: start: 20210420, end: 20211101
  10. PIRFENIDONE [Concomitant]
     Active Substance: PIRFENIDONE
     Dosage: 6 DOSAGE FORM, TID
     Route: 065
     Dates: start: 20211102, end: 20211213
  11. PIRFENIDONE [Concomitant]
     Active Substance: PIRFENIDONE
     Dosage: 9 DOSAGE FORM, TID
     Route: 065
     Dates: start: 20211214, end: 20240307
  12. CISPLATIN [Concomitant]
     Active Substance: CISPLATIN
     Indication: Lung adenocarcinoma stage II
     Route: 065
     Dates: start: 20210511
  13. VINORELBINE TARTRATE [Concomitant]
     Active Substance: VINORELBINE TARTRATE
     Indication: Lung adenocarcinoma stage II
     Route: 065
     Dates: start: 20210511
  14. ZOLPIDEM TARTRATE [Concomitant]
     Active Substance: ZOLPIDEM TARTRATE
     Dates: start: 20211102, end: 20250211
  15. CARBOCYSTEINE [Concomitant]
     Active Substance: CARBOCYSTEINE
     Dates: start: 20200915, end: 20250211
  16. MAGNESIUM OXIDE [Concomitant]
     Active Substance: MAGNESIUM OXIDE
     Indication: Prophylaxis
     Dates: start: 20240109, end: 20250211
  17. PITAVASTATIN CALCIUM [Concomitant]
     Active Substance: PITAVASTATIN CALCIUM
     Dates: start: 20210121, end: 20250211
  18. OXYCODONE HYDROCHLORIDE [Concomitant]
     Active Substance: OXYCODONE HYDROCHLORIDE
     Indication: Interstitial lung disease
     Dates: start: 20231205, end: 20250211
  19. MORPHINE HYDROCHLORIDE [Concomitant]
     Active Substance: MORPHINE HYDROCHLORIDE
     Indication: Combined pulmonary fibrosis and emphysema
     Dosage: 5 MG, BID
     Route: 048
     Dates: start: 20220308, end: 20250211
  20. MORPHINE HYDROCHLORIDE [Concomitant]
     Active Substance: MORPHINE HYDROCHLORIDE
     Indication: Pneumonia bacterial
  21. METOCLOPRAMIDE [Concomitant]
     Active Substance: METOCLOPRAMIDE
     Indication: Prophylaxis
     Dates: start: 20230919, end: 20250211
  22. METOCLOPRAMIDE [Concomitant]
     Active Substance: METOCLOPRAMIDE
     Indication: Nausea
  23. TRAZODONE HYDROCHLORIDE [Concomitant]
     Active Substance: TRAZODONE HYDROCHLORIDE
     Indication: Prophylaxis
     Dates: start: 20240307, end: 20250211
  24. RISPERIDONE [Concomitant]
     Active Substance: RISPERIDONE
     Indication: Prophylaxis
     Dates: start: 20240307, end: 20250211
  25. AMBROXOL HYDROCHLORIDE [Concomitant]
     Active Substance: AMBROXOL HYDROCHLORIDE
     Indication: Prophylaxis
     Dates: start: 20240703, end: 20250211
  26. PIRFENIDONE [Concomitant]
     Active Substance: PIRFENIDONE
     Dates: start: 20240925, end: 20250211
  27. LORAZEPAM [Concomitant]
     Active Substance: LORAZEPAM
     Indication: Prophylaxis
     Dates: start: 20240925, end: 20250211
  28. DEXTROMETHORPHAN HYDROBROMIDE [Concomitant]
     Active Substance: DEXTROMETHORPHAN HYDROBROMIDE
     Indication: Nausea
     Dates: start: 20230919, end: 20250211
  29. HALOPERIDOL [Concomitant]
     Active Substance: HALOPERIDOL
     Dates: start: 20250211, end: 20250211
  30. SODIUM CHLORIDE [Concomitant]
     Active Substance: SODIUM CHLORIDE
     Indication: Medication dilution
     Dates: start: 20250211, end: 20250211
  31. SODIUM CHLORIDE [Concomitant]
     Active Substance: SODIUM CHLORIDE
     Dates: start: 20250211, end: 20250211
  32. ATARAX P [HYDROXYZINE HYDROCHLORIDE] [Concomitant]
     Dates: start: 20250211, end: 20250211
  33. MS CONTIN [Concomitant]
     Active Substance: MORPHINE SULFATE
     Indication: Lung adenocarcinoma stage II
     Route: 048
     Dates: start: 20241126, end: 20250211
  34. DAYVIGO [Concomitant]
     Active Substance: LEMBOREXANT
     Dates: start: 20241126, end: 20250211
  35. SYMPROIC [Concomitant]
     Active Substance: NALDEMEDINE TOSYLATE
     Indication: Prophylaxis
     Dates: start: 20241225, end: 20250211
  36. ACETAMINOPHEN [Concomitant]
     Active Substance: ACETAMINOPHEN
     Indication: Prophylaxis
     Dates: start: 20250210, end: 20250211
  37. LOXOPROFEN SODIUM [Concomitant]
     Active Substance: LOXOPROFEN SODIUM
     Indication: Prophylaxis
     Route: 048
     Dates: start: 20240314
  38. LOXOPROFEN SODIUM [Concomitant]
     Active Substance: LOXOPROFEN SODIUM
     Indication: Pneumonia bacterial
     Dates: start: 20250210, end: 20250211
  39. REBAMIPIDE [Concomitant]
     Active Substance: REBAMIPIDE
     Indication: Prophylaxis
     Dates: start: 20250210, end: 20250211
  40. DEXTROSE\SODIUM CHLORIDE\SODIUM LACTATE [Concomitant]
     Active Substance: DEXTROSE\SODIUM CHLORIDE\SODIUM LACTATE
     Indication: Pneumothorax
     Dates: start: 20250210, end: 20250211
  41. CALCIUM CHLORIDE\MAGNESIUM CHLORIDE\POTASSIUM CHLORIDE\SODIUM ACETATE\ [Concomitant]
     Active Substance: CALCIUM CHLORIDE\MAGNESIUM CHLORIDE\POTASSIUM CHLORIDE\SODIUM ACETATE\SODIUM CHLORIDE
     Indication: Pneumothorax
     Dates: start: 20250210, end: 20250211

REACTIONS (16)
  - Combined pulmonary fibrosis and emphysema [Fatal]
  - Interstitial lung disease [Fatal]
  - Lung adenocarcinoma stage II [Fatal]
  - Pneumothorax [Fatal]
  - Pneumonia bacterial [Recovering/Resolving]
  - Pyrexia [Recovering/Resolving]
  - Dizziness [Recovering/Resolving]
  - Nausea [Recovering/Resolving]
  - Fatigue [Unknown]
  - Back pain [Recovering/Resolving]
  - Nausea [Unknown]
  - Nausea [Unknown]
  - Malaise [Unknown]
  - Injection site reaction [Unknown]
  - Neutrophil count decreased [Unknown]
  - Anaemia [Unknown]

NARRATIVE: CASE EVENT DATE: 20210101
